FAERS Safety Report 6550681-1 (Version None)
Quarter: 2010Q1

REPORT INFORMATION
  Report Type: 
  Country: None (occurrence: None)
  Receive Date: 20100125
  Receipt Date: 20091022
  Transmission Date: 20100710
  Serious: No
  Sender: FDA-Public Use
  Company Number: US-TYCO HEALTHCARE/MALLINCKRODT-T200901925

PATIENT
  Sex: Male
  Weight: 96.145 kg

DRUGS (2)
  1. OPTIRAY 350 [Suspect]
     Indication: COMPUTERISED TOMOGRAM
     Dosage: 150 ML, SINGLE
     Route: 042
     Dates: start: 20091012, end: 20091012
  2. BENADRYL [Concomitant]
     Indication: PREMEDICATION
     Dosage: 2 TABLETS
     Route: 048
     Dates: start: 20091001, end: 20091001

REACTIONS (4)
  - ERYTHEMA [None]
  - PRURITUS [None]
  - RASH MACULAR [None]
  - URTICARIA [None]
